FAERS Safety Report 25931577 (Version 1)
Quarter: 2025Q4

REPORT INFORMATION
  Report Type: Spontaneous
  Country: US (occurrence: US)
  Receive Date: 20251016
  Receipt Date: 20251016
  Transmission Date: 20260118
  Serious: Yes (Hospitalization)
  Sender: BAYER HEALTHCARE PHARMACEUTICALS INC.
  Company Number: US-BAYER-2025A133913

PATIENT

DRUGS (1)
  1. KERENDIA [Suspect]
     Active Substance: FINERENONE
     Dosage: UNK

REACTIONS (2)
  - Blood potassium increased [Not Recovered/Not Resolved]
  - Glomerular filtration rate decreased [Not Recovered/Not Resolved]

NARRATIVE: CASE EVENT DATE: 20251009
